FAERS Safety Report 4712183-4 (Version None)
Quarter: 2005Q3

REPORT INFORMATION
  Report Type: 
  Country: None (occurrence: None)
  Receive Date: 20050712
  Receipt Date: 19991105
  Transmission Date: 20060218
  Serious: Yes (Life-Threatening, Hospitalization)
  Sender: FDA-Public Use
  Company Number: 10171718

PATIENT
  Age: 64 Year
  Sex: Female

DRUGS (5)
  1. METFORMIN HCL [Suspect]
     Indication: DIABETES MELLITUS
     Route: 048
     Dates: start: 19940101
  2. ORLISTAT [Interacting]
     Indication: OBESITY
     Route: 048
     Dates: start: 19990622, end: 19990914
  3. ASPIRIN [Concomitant]
     Dates: start: 19940101
  4. AMILORIDE HCL AND HYDROCHLOROTHIAZIDE [Concomitant]
  5. CIMETIDINE [Concomitant]
     Indication: ABDOMINAL PAIN
     Dates: start: 19990814

REACTIONS (5)
  - ABDOMINAL PAIN [None]
  - DIARRHOEA [None]
  - DRUG INTERACTION [None]
  - LACTIC ACIDOSIS [None]
  - VOMITING [None]
